FAERS Safety Report 5597591-4 (Version None)
Quarter: 2008Q1

REPORT INFORMATION
  Report Type: 
  Country: None (occurrence: None)
  Receive Date: 20080121
  Receipt Date: 20080116
  Transmission Date: 20080703
  Serious: Yes (Hospitalization)
  Sender: FDA-Public Use
  Company Number: B0502610A

PATIENT
  Age: 72 Year
  Sex: Female

DRUGS (4)
  1. ZOPHREN [Suspect]
     Indication: PREMEDICATION
     Dosage: 8MG PER DAY
     Route: 042
     Dates: start: 20070829, end: 20070829
  2. RANIPLEX [Suspect]
     Indication: PREMEDICATION
     Dosage: 50MG PER DAY
     Route: 042
     Dates: start: 20070829, end: 20070829
  3. SOLU-MEDROL [Suspect]
     Indication: PREMEDICATION
     Dosage: 32MG PER DAY
     Route: 042
     Dates: start: 20070829, end: 20070829
  4. POLARAMINE [Suspect]
     Indication: PREMEDICATION
     Dosage: 5MG PER DAY
     Route: 042
     Dates: start: 20070829, end: 20070829

REACTIONS (8)
  - ANAPHYLACTIC SHOCK [None]
  - DYSPNOEA [None]
  - FACE OEDEMA [None]
  - HYPOTENSION [None]
  - HYPOXIA [None]
  - PULMONARY OEDEMA [None]
  - RESPIRATORY ACIDOSIS [None]
  - VOMITING [None]
